FAERS Safety Report 9797759 (Version 1)
Quarter: 2014Q1

REPORT INFORMATION
  Report Type: Spontaneous
  Country: US (occurrence: US)
  Receive Date: 20140106
  Receipt Date: 20140106
  Transmission Date: 20141002
  Serious: Yes (Hospitalization, Other)
  Sender: FDA-Public Use
  Company Number: US-AMGEN-USASP2014000257

PATIENT
  Sex: Female

DRUGS (1)
  1. ENBREL [Suspect]
     Indication: RHEUMATOID ARTHRITIS
     Dosage: 50 MG, UNK
     Route: 065
     Dates: end: 201312

REACTIONS (4)
  - Hernia [Recovered/Resolved]
  - Diabetes mellitus [Not Recovered/Not Resolved]
  - Gastric bypass [Recovered/Resolved]
  - Rheumatoid arthritis [Not Recovered/Not Resolved]
